FAERS Safety Report 7778843-6 (Version None)
Quarter: 2011Q3

REPORT INFORMATION
  Report Type: 
  Country: None (occurrence: None)
  Receive Date: 20110926
  Receipt Date: 20110920
  Transmission Date: 20111222
  Serious: Yes (Hospitalization, Other)
  Sender: FDA-Public Use
  Company Number: US-BAYER-200937687NA

PATIENT
  Age: 64 Year
  Sex: Female
  Weight: 45.351 kg

DRUGS (39)
  1. TRASYLOL [Suspect]
     Indication: CORONARY ARTERY BYPASS
     Dosage: 200 ML, ONCE PUMP PRIME
     Route: 042
     Dates: start: 20070124, end: 20070124
  2. ACETYLSALICYLIC ACID SRT [Concomitant]
     Dosage: 81 MG, QD
     Route: 048
  3. FACTOR VII [Concomitant]
     Indication: COAGULOPATHY
     Dosage: UNK
     Dates: start: 20070124
  4. OMNIPAQUE 140 [Concomitant]
     Indication: CATHETERISATION CARDIAC
     Dosage: 150 ML, UNK
     Dates: start: 20061109
  5. HEPARIN [Concomitant]
     Dosage: 32000 U, UNK
     Route: 042
     Dates: start: 20070124, end: 20070124
  6. INSULIN [Concomitant]
     Dosage: UNK
     Route: 042
     Dates: start: 20070124
  7. MAGNESIUM SULFATE [Concomitant]
     Dosage: 4 G, UNK
     Route: 042
     Dates: start: 20070124, end: 20070124
  8. MORPHINE [Concomitant]
     Dosage: UNK
     Route: 042
     Dates: start: 20070124, end: 20070124
  9. CIPROFLOXACIN [Concomitant]
     Dosage: UNK
     Dates: start: 20070209
  10. SPIRONOLACTONE [Concomitant]
     Dosage: UNK
     Dates: start: 20010101
  11. PREMARIN [Concomitant]
     Dosage: 0.25 MG, QD
  12. HYOSCYAMINE [Concomitant]
     Dosage: 3/0.275MG
     Route: 048
  13. BENTYL [Concomitant]
  14. PLATELETS [Concomitant]
     Dosage: 2 U, UNK
     Dates: start: 20070124
  15. INOSITOL [Concomitant]
     Dosage: 3.02/275 MG
     Route: 048
  16. FENTANYL [Concomitant]
     Dosage: UNK
     Route: 042
     Dates: start: 20070124, end: 20070124
  17. CANCIDAS [Concomitant]
     Dosage: UNK
     Dates: start: 20070209
  18. ALDACTONE [Concomitant]
     Dosage: UNK
     Dates: start: 20030101
  19. DOPAMINE HCL [Concomitant]
     Dosage: UNK
     Route: 042
     Dates: start: 20070124
  20. VANCOMYCIN [Concomitant]
     Dosage: UNK
     Dates: start: 20070524
  21. TRASYLOL [Suspect]
     Dosage: 50 ML, Q1HR
     Route: 042
     Dates: start: 20070124, end: 20070124
  22. CIPROFLOXACIN [Concomitant]
     Indication: PNEUMONIA
     Dosage: UNK
     Dates: start: 20070130
  23. AZACTAM [Concomitant]
     Dosage: UNK
     Dates: start: 20070201
  24. KEFZOL [Concomitant]
     Dosage: UNK
     Route: 042
     Dates: start: 20070124
  25. CALCIUM CHLORIDE [Concomitant]
     Dosage: UNK
     Route: 042
     Dates: start: 20070124, end: 20070124
  26. TRASYLOL [Suspect]
     Indication: AORTIC ANASTOMOSIS
     Dosage: 200 ML, ONCE LOADING DOSE
     Route: 042
     Dates: start: 20070124, end: 20070124
  27. FRESH FROZEN PLASMA [Concomitant]
     Dosage: 8 U, UNK
     Dates: start: 20070124
  28. CRESTOR [Concomitant]
     Dosage: 5 MG, QD
     Route: 048
  29. VERSED [Concomitant]
     Dosage: UNK
     Route: 042
     Dates: start: 20070124, end: 20070124
  30. FUROSEMIDE [Concomitant]
     Dosage: UNK
     Dates: start: 20010101
  31. LIPITOR [Concomitant]
  32. TRASYLOL [Suspect]
     Indication: AORTIC VALVE REPLACEMENT
     Dosage: 1 ML, ONCE INITIAL DOSE
     Route: 042
     Dates: start: 20070124, end: 20070124
  33. RED BLOOD CELLS [Concomitant]
     Dosage: 2 U, UNK
     Dates: start: 20070124
  34. SURFAK [Concomitant]
     Dosage: 1 G, QD
     Route: 048
  35. NEXIUM [Concomitant]
     Dosage: 40 MG, QD
     Route: 048
  36. ATENOLOL [Concomitant]
     Dosage: 25 MG, QD
     Route: 048
  37. PROTAMINE [Concomitant]
     Dosage: UNK
     Route: 042
     Dates: start: 20070124, end: 20070124
  38. PAVULON [Concomitant]
     Dosage: UNK
     Route: 042
     Dates: start: 20070124, end: 20070124
  39. VANCOMYCIN [Concomitant]
     Dosage: UNK
     Dates: start: 20070205

REACTIONS (5)
  - MENTAL DISORDER [None]
  - UNEVALUABLE EVENT [None]
  - INJURY [None]
  - RENAL FAILURE [None]
  - PAIN [None]
